FAERS Safety Report 25593071 (Version 1)
Quarter: 2025Q3

REPORT INFORMATION
  Report Type: Spontaneous
  Country: US (occurrence: US)
  Receive Date: 20250722
  Receipt Date: 20250722
  Transmission Date: 20251020
  Serious: Yes (Other)
  Sender: BRISTOL-MYERS SQUIBB COMPANY
  Company Number: US-BRISTOL-MYERS SQUIBB COMPANY-2025-102401

PATIENT
  Age: 87 Year
  Sex: Male
  Weight: 58.97 kg

DRUGS (2)
  1. VIDAZA [Suspect]
     Active Substance: AZACITIDINE
     Indication: Plasma cell myeloma
     Route: 058
     Dates: start: 20250623
  2. PREDNISONE [Concomitant]
     Active Substance: PREDNISONE
     Indication: Product used for unknown indication

REACTIONS (6)
  - Urinary retention [Unknown]
  - Haematochezia [Unknown]
  - Injection site rash [Unknown]
  - Injection site pruritus [Unknown]
  - Constipation [Unknown]
  - Haematuria [Unknown]
